FAERS Safety Report 21819229 (Version 1)
Quarter: 2023Q1

REPORT INFORMATION
  Report Type: Spontaneous
  Country: DE (occurrence: DE)
  Receive Date: 20230104
  Receipt Date: 20230104
  Transmission Date: 20230417
  Serious: Yes (Hospitalization, Other)
  Sender: FDA-Public Use
  Company Number: DE-JNJFOC-20221249065

PATIENT
  Age: 32 Year
  Sex: Male

DRUGS (8)
  1. LORAZEPAM [Suspect]
     Active Substance: LORAZEPAM
     Indication: Schizophrenia
     Route: 048
     Dates: start: 20220425, end: 20220608
  2. FLUPENTIXOL [Suspect]
     Active Substance: FLUPENTIXOL
     Indication: Schizophrenia
     Dosage: MORNING AND NIGHT
     Route: 048
     Dates: start: 20220522, end: 20220523
  3. FLUPENTIXOL [Suspect]
     Active Substance: FLUPENTIXOL
     Route: 048
     Dates: start: 20220517, end: 20220521
  4. FLUPENTIXOL [Suspect]
     Active Substance: FLUPENTIXOL
     Route: 048
     Dates: start: 20220511, end: 20220516
  5. CARIPRAZINE [Suspect]
     Active Substance: CARIPRAZINE
     Indication: Schizophrenia
     Route: 048
     Dates: start: 20220524, end: 20220720
  6. RISPERDAL [Suspect]
     Active Substance: RISPERIDONE
     Indication: Schizophrenia
     Route: 048
     Dates: start: 20220511
  7. PIPAMPERONE [Suspect]
     Active Substance: PIPAMPERONE
     Indication: Schizophrenia
     Route: 048
     Dates: start: 20220601
  8. PIPAMPERONE [Suspect]
     Active Substance: PIPAMPERONE
     Route: 048
     Dates: start: 20220502, end: 20220601

REACTIONS (2)
  - Joint dislocation [Recovering/Resolving]
  - Dyskinesia [Recovering/Resolving]

NARRATIVE: CASE EVENT DATE: 20220521
